FAERS Safety Report 4468903-X (Version None)
Quarter: 2004Q4

REPORT INFORMATION
  Report Type: 
  Country: None (occurrence: None)
  Receive Date: 20041005
  Receipt Date: 20041005
  Transmission Date: 20050328
  Serious: Yes (Life-Threatening, Hospitalization, Disabling)
  Sender: FDA-Public Use
  Company Number: None

PATIENT
  Sex: Female
  Weight: 56.246 kg

DRUGS (1)
  1. PENICILLAMINE [Suspect]
     Indication: HEPATO-LENTICULAR DEGENERATION
     Dosage: VARIED 250 MG TO 2,500 MG
     Dates: start: 19720101, end: 19930101

REACTIONS (6)
  - ACUTE RESPIRATORY DISTRESS SYNDROME [None]
  - AUTOIMMUNE DISORDER [None]
  - ELASTOSIS PERFORANS [None]
  - PHOTOSENSITIVITY REACTION [None]
  - SKIN WRINKLING [None]
  - SPEECH DISORDER [None]
